FAERS Safety Report 5990868-X (Version None)
Quarter: 2008Q4

REPORT INFORMATION
  Report Type: 
  Country: None (occurrence: None)
  Receive Date: 20081211
  Receipt Date: 20081205
  Transmission Date: 20090506
  Serious: Yes (Other)
  Sender: FDA-Public Use
  Company Number: US-PFIZER INC-2008150182

PATIENT
  Sex: Male

DRUGS (3)
  1. VIAGRA [Suspect]
  2. ZYRTEC [Suspect]
  3. CLARITIN-D [Concomitant]

REACTIONS (1)
  - PROSTATE CANCER [None]
